FAERS Safety Report 24250889 (Version 1)
Quarter: 2024Q3

REPORT INFORMATION
  Report Type: Spontaneous
  Country: CA (occurrence: None)
  Receive Date: 20240825
  Receipt Date: 20240825
  Transmission Date: 20241016
  Serious: Yes (Other)
  Sender: Public
  Company Number: None

PATIENT
  Age: 39 Year
  Sex: Female
  Weight: 60.75 kg

DRUGS (1)
  1. MONISTAT 3 [Suspect]
     Active Substance: MICONAZOLE NITRATE
     Indication: Fungal infection
     Dosage: FREQUENCY : DAILY;?
     Route: 067
     Dates: start: 20240825, end: 20240825

REACTIONS (2)
  - Application site burn [None]
  - Application site pain [None]

NARRATIVE: CASE EVENT DATE: 20240825
